FAERS Safety Report 5853014-9 (Version None)
Quarter: 2008Q3

REPORT INFORMATION
  Report Type: 
  Country: None (occurrence: None)
  Receive Date: 20080814
  Receipt Date: 20080421
  Transmission Date: 20090109
  Serious: No
  Sender: FDA-Public Use
  Company Number: WAES 0804USA04619

PATIENT
  Sex: Male

DRUGS (3)
  1. ISENTRESS [Suspect]
     Indication: HIV INFECTION
     Dosage: 400 MG/BID/PO
     Route: 048
     Dates: start: 20080321
  2. PREZISTA [Concomitant]
  3. [THERAPY UNSPECIFIED] [Concomitant]

REACTIONS (3)
  - DIARRHOEA [None]
  - DRY SKIN [None]
  - HEADACHE [None]
